FAERS Safety Report 9242611 (Version 2)
Quarter: 2013Q2

REPORT INFORMATION
  Report Type: Report from Study
  Country: US (occurrence: US)
  Receive Date: 20130419
  Receipt Date: 20130522
  Transmission Date: 20140414
  Serious: Yes (Hospitalization, Disabling)
  Sender: FDA-Public Use
  Company Number: US-GLAXOSMITHKLINE-A1020287A

PATIENT
  Age: 30 Year
  Sex: Female
  Weight: 60.1 kg

DRUGS (9)
  1. LAPATINIB [Suspect]
     Indication: EPENDYMOMA
     Dosage: 1250MG PER DAY
     Route: 048
     Dates: start: 20130202
  2. TEMOZOLOMIDE [Suspect]
     Indication: EPENDYMOMA
     Dosage: 215MG CYCLIC
     Dates: start: 20130202
  3. DEXAMETHASONE [Concomitant]
  4. SENNA [Concomitant]
  5. ZOFRAN [Concomitant]
  6. OMEPRAZOLE [Concomitant]
  7. COLACE [Concomitant]
  8. NYSTATIN [Concomitant]
  9. BACTRIM DS [Concomitant]

REACTIONS (5)
  - Diarrhoea [Recovered/Resolved]
  - Pneumonitis [Not Recovered/Not Resolved]
  - Dyspnoea [Not Recovered/Not Resolved]
  - Muscular weakness [Not Recovered/Not Resolved]
  - Ataxia [Not Recovered/Not Resolved]
